FAERS Safety Report 4698523-3 (Version None)
Quarter: 2005Q2

REPORT INFORMATION
  Report Type: 
  Country: None (occurrence: None)
  Receive Date: 20050622
  Receipt Date: 20050615
  Transmission Date: 20051028
  Serious: Yes (Other)
  Sender: FDA-Public Use
  Company Number: 2005086813

PATIENT
  Age: 75 Year
  Sex: Female
  Weight: 78.4723 kg

DRUGS (13)
  1. LIPITOR [Suspect]
     Indication: BLOOD CHOLESTEROL INCREASED
     Dosage: 10 MG (10 MG, 1 IN 1 D) ORAL
     Route: 048
     Dates: start: 19990101
  2. XALATAN [Suspect]
     Indication: GLAUCOMA
     Dosage: INTRAOCULAR
     Route: 031
  3. THROAT PREPARATIONS (THROAT PREPARATIONS) [Suspect]
     Indication: ILL-DEFINED DISORDER
     Dosage: ORAL
     Route: 048
  4. ZOLOFT [Concomitant]
  5. CARTIA XT [Concomitant]
  6. SPIRONOLACTONE W/HYDROCHLOROTHIAZIDE (HYDROCHLOROTHIAZIDE, SPIRONOLACT [Concomitant]
  7. LEVOXYL [Concomitant]
  8. ALBUTEROL [Concomitant]
  9. CLIMARA [Concomitant]
  10. METROGEL [Concomitant]
  11. ASTELIN [Concomitant]
  12. ACETAMINOPHEN [Concomitant]
  13. TYLENOL [Concomitant]

REACTIONS (10)
  - ARTHRALGIA [None]
  - BLOOD CHOLESTEROL INCREASED [None]
  - CONDITION AGGRAVATED [None]
  - DRUG INEFFECTIVE [None]
  - FALL [None]
  - GLAUCOMA [None]
  - MENIERE'S DISEASE [None]
  - PAIN IN EXTREMITY [None]
  - PHARMACEUTICAL PRODUCT COMPLAINT [None]
  - PHARYNGOLARYNGEAL PAIN [None]
